FAERS Safety Report 6063557-3 (Version None)
Quarter: 2009Q1

REPORT INFORMATION
  Report Type: 
  Country: None (occurrence: None)
  Receive Date: 20090129
  Receipt Date: 20090119
  Transmission Date: 20090719
  Serious: Yes (Hospitalization)
  Sender: FDA-Public Use
  Company Number: 1-17343625

PATIENT
  Age: 56 Year
  Sex: Male

DRUGS (15)
  1. CARVEDILOL [Suspect]
     Indication: CARDIAC FAILURE
     Dosage: 12.5 MG TWICE DAILY, ORAL
     Route: 048
  2. SIMVASTATIN [Suspect]
     Dosage: 40 MG PER DAY, ORAL
     Route: 048
  3. CYCLOSPORINE [Suspect]
     Dosage: 75 MG TWICE DAILY, ORAL
     Route: 048
  4. RANOLAZINE ER [Suspect]
     Indication: CARDIAC FAILURE
     Dosage: 500 MG PER DAY, ORAL
     Route: 048
  5. DILTIAZEM [Suspect]
     Indication: CARDIAC FAILURE
     Dosage: 60 MG TWICE DAILY, ORAL
     Route: 048
  6. METOPROLOL TARTRATE [Concomitant]
  7. FUROSEMIDE [Concomitant]
  8. TAMSULOSIN HCL [Concomitant]
  9. SERTRALINE [Concomitant]
  10. FLUDROCORTISONES [Concomitant]
  11. CLONIDINE HCL [Concomitant]
  12. ESOMEPRAZOLE MAGNESIUM [Concomitant]
  13. CLOPIDOGREL [Concomitant]
  14. INSULIN GLARGINE [Concomitant]
  15. GLARGINE [Concomitant]

REACTIONS (2)
  - DRUG INTERACTION [None]
  - RHABDOMYOLYSIS [None]
